FAERS Safety Report 6382170-1 (Version None)
Quarter: 2009Q3

REPORT INFORMATION
  Report Type: 
  Country: None (occurrence: None)
  Receive Date: 20090930
  Receipt Date: 20090923
  Transmission Date: 20100115
  Serious: Yes (Hospitalization)
  Sender: FDA-Public Use
  Company Number: FR-BRISTOL-MYERS SQUIBB COMPANY-14793178

PATIENT
  Age: 76 Year
  Sex: Male

DRUGS (8)
  1. FOSINOPRIL SODIUM AND HYDROCHLOROTHIAZIDE [Suspect]
     Route: 048
     Dates: start: 20080301
  2. PLAVIX [Concomitant]
  3. PRAVASTATIN [Concomitant]
  4. AERIUS [Concomitant]
  5. FORADIL [Concomitant]
  6. BUDESONIDE [Concomitant]
  7. SINGULAIR [Concomitant]
  8. ZOLPIDEM [Concomitant]

REACTIONS (1)
  - PEMPHIGOID [None]
